FAERS Safety Report 7576097-7 (Version None)
Quarter: 2011Q2

REPORT INFORMATION
  Report Type: 
  Country: None (occurrence: None)
  Receive Date: 20110623
  Receipt Date: 20110623
  Transmission Date: 20111010
  Serious: No
  Sender: FDA-Public Use
  Company Number: None

PATIENT

DRUGS (1)
  1. ATENOLOL [Suspect]
     Indication: CARDIAC DISORDER
     Dosage: 1/2 DAILY

REACTIONS (2)
  - TYPE 2 DIABETES MELLITUS [None]
  - PANCREATIC DISORDER [None]
